FAERS Safety Report 6240310-9 (Version None)
Quarter: 2009Q2

REPORT INFORMATION
  Report Type: 
  Country: None (occurrence: None)
  Receive Date: 20090623
  Receipt Date: 20080701
  Transmission Date: 20091009
  Serious: No
  Sender: FDA-Public Use
  Company Number: US-ASTRAZENECA-2008UW13216

PATIENT
  Age: 52 Year
  Sex: Female
  Weight: 62.6 kg

DRUGS (1)
  1. PULMICORT FLEXHALER [Suspect]
     Indication: ASTHMA
     Dosage: 90MCG ONE INHALATION
     Route: 055

REACTIONS (2)
  - DYSPNOEA [None]
  - SOMNOLENCE [None]
